FAERS Safety Report 17119981 (Version 1)
Quarter: 2019Q4

REPORT INFORMATION
  Report Type: Spontaneous
  Country: SE (occurrence: SE)
  Receive Date: 20191206
  Receipt Date: 20191206
  Transmission Date: 20200122
  Serious: Yes (Hospitalization)
  Sender: FDA-Public Use
  Company Number: SE-TEVA-2019-SE-1146848

PATIENT
  Age: 45 Year
  Sex: Female

DRUGS (6)
  1. OXASCAND [Suspect]
     Active Substance: OXAZEPAM
     Dosage: 25 MG
     Route: 048
     Dates: start: 20180419, end: 20180419
  2. ZOPICLONE [Suspect]
     Active Substance: ZOPICLONE
     Dosage: 37.5 MG
     Route: 048
     Dates: start: 20180419, end: 20180419
  3. PROPAVAN [Suspect]
     Active Substance: PROPIOMAZINE
     Dosage: 125 MG
     Route: 048
     Dates: start: 20180419, end: 20180419
  4. ALIMEMAZINE [Suspect]
     Active Substance: TRIMEPRAZINE
     Dosage: 300 MG
     Route: 048
     Dates: start: 20180419, end: 20180419
  5. LERGIGAN (PROMETHAZINE HYDROCHLORIDE) [Suspect]
     Active Substance: PROMETHAZINE HYDROCHLORIDE
     Dosage: 375 MG
     Route: 048
     Dates: start: 20180419, end: 20180419
  6. CITALOPRAM [Suspect]
     Active Substance: CITALOPRAM HYDROBROMIDE
     Dosage: 150 MG
     Route: 048
     Dates: start: 20180419, end: 20180419

REACTIONS (2)
  - Intentional overdose [Unknown]
  - Intentional self-injury [Unknown]

NARRATIVE: CASE EVENT DATE: 20180419
